FAERS Safety Report 6038667-7 (Version None)
Quarter: 2009Q1

REPORT INFORMATION
  Report Type: 
  Country: None (occurrence: None)
  Receive Date: 20090113
  Receipt Date: 20081118
  Transmission Date: 20090719
  Serious: No
  Sender: FDA-Public Use
  Company Number: 2008BM000228

PATIENT
  Age: 21 Year
  Sex: Female
  Weight: 58.9676 kg

DRUGS (3)
  1. KUVAN [Suspect]
     Indication: PHENYLKETONURIA
     Dosage: 1200 MG;QD;PO, 300 MG;BID;PO
     Route: 048
     Dates: start: 20080101, end: 20080101
  2. KUVAN [Suspect]
     Indication: PHENYLKETONURIA
     Dosage: 1200 MG;QD;PO, 300 MG;BID;PO
     Route: 048
     Dates: start: 20080101, end: 20080601
  3. ORAL CONTRAPECTIVE NOS [Suspect]
     Indication: CONTRACEPTION

REACTIONS (2)
  - NAUSEA [None]
  - VOMITING [None]
